FAERS Safety Report 12587274 (Version 3)
Quarter: 2016Q3

REPORT INFORMATION
  Report Type: Spontaneous
  Country: US (occurrence: US)
  Receive Date: 20160725
  Receipt Date: 20160808
  Transmission Date: 20161109
  Serious: No
  Sender: FDA-Public Use
  Company Number: US-BEH-2016063001

PATIENT
  Sex: Female
  Weight: 53 kg

DRUGS (11)
  1. SPIRONOLACTONE. [Concomitant]
     Active Substance: SPIRONOLACTONE
  2. MULTIVITAMINS [Concomitant]
     Active Substance: VITAMINS
  3. XANAX [Concomitant]
     Active Substance: ALPRAZOLAM
  4. PROZAC [Concomitant]
     Active Substance: FLUOXETINE HYDROCHLORIDE
  5. ACETAMINOPHEN. [Concomitant]
     Active Substance: ACETAMINOPHEN
  6. LIDOCAINE. [Concomitant]
     Active Substance: LIDOCAINE
  7. HIZENTRA [Suspect]
     Active Substance: HUMAN IMMUNOGLOBULIN G
     Indication: IMMUNODEFICIENCY COMMON VARIABLE
     Route: 058
  8. ESTRACE [Concomitant]
     Active Substance: ESTRADIOL
  9. EPIPEN [Concomitant]
     Active Substance: EPINEPHRINE
  10. ADDERALL [Concomitant]
     Active Substance: AMPHETAMINE ASPARTATE\AMPHETAMINE SULFATE\DEXTROAMPHETAMINE SACCHARATE\DEXTROAMPHETAMINE SULFATE
  11. DIPHENHYDRAMINE. [Concomitant]
     Active Substance: DIPHENHYDRAMINE

REACTIONS (2)
  - Secretion discharge [Unknown]
  - Sinusitis [Unknown]
